FAERS Safety Report 11212625 (Version 1)
Quarter: 2015Q2

REPORT INFORMATION
  Report Type: Spontaneous
  Country: US (occurrence: None)
  Receive Date: 20150622
  Receipt Date: 20150622
  Transmission Date: 20150821
  Serious: Yes (Disabling)
  Sender: FDA-Public Use
  Company Number: None

PATIENT
  Age: 61 Year
  Sex: Female
  Weight: 78.93 kg

DRUGS (9)
  1. DULOXETINE [Suspect]
     Active Substance: DULOXETINE
     Indication: DEPRESSION
     Dosage: 1 - 60MG AND 1- 30MG
     Dates: start: 20150605, end: 20150621
  2. DULOXETINE [Suspect]
     Active Substance: DULOXETINE
     Indication: ARTHRITIS
     Dosage: 1 - 60MG AND 1- 30MG
     Dates: start: 20150605, end: 20150621
  3. NEXIUM [Concomitant]
     Active Substance: ESOMEPRAZOLE MAGNESIUM
  4. LEVOTHYROXIN [Concomitant]
     Active Substance: LEVOTHYROXINE
  5. LISINOPRIL. [Concomitant]
     Active Substance: LISINOPRIL
  6. PROBIOTICS [Concomitant]
     Active Substance: PROBIOTICS NOS
  7. DULOXETINE [Suspect]
     Active Substance: DULOXETINE
     Indication: FIBROMYALGIA
     Dosage: 1 - 60MG AND 1- 30MG
     Dates: start: 20150605, end: 20150621
  8. SIMVISTATIN [Concomitant]
     Active Substance: SIMVASTATIN
  9. MULTI VITAMIN [Concomitant]
     Active Substance: VITAMINS

REACTIONS (5)
  - Depression [None]
  - Suicidal ideation [None]
  - Pain [None]
  - Gastric disorder [None]
  - Blood pressure increased [None]

NARRATIVE: CASE EVENT DATE: 20150605
